FAERS Safety Report 5736919-9 (Version None)
Quarter: 2008Q2

REPORT INFORMATION
  Report Type: 
  Country: None (occurrence: None)
  Receive Date: 20080509
  Receipt Date: 20080425
  Transmission Date: 20081010
  Serious: Yes (Death)
  Sender: FDA-Public Use
  Company Number: 2008000975

PATIENT
  Age: 47 Year
  Sex: Male

DRUGS (3)
  1. ERLOTINIB (ERLOTINIB HCL) (TABLET) (ERLOTINIB HCL) [Suspect]
     Indication: PANCREATIC CARCINOMA
     Dosage: (100 MG, QD), ORAL
     Route: 048
     Dates: start: 20071031
  2. CAPECITABINE (CAPECITABINE) [Suspect]
     Indication: PANCREATIC CARCINOMA
     Dosage: (1150 MG, BID), ORAL
     Route: 048
     Dates: start: 20071031
  3. GEMCITABINE [Suspect]
     Indication: PANCREATIC CARCINOMA
     Dosage: (1730 MG, 1 X PER 4 WEEK), INTRAVENOUS
     Route: 042
     Dates: start: 20071031

REACTIONS (5)
  - CEREBRAL INFARCTION [None]
  - DISEASE PROGRESSION [None]
  - EMBOLISM [None]
  - HEADACHE [None]
  - LOSS OF CONSCIOUSNESS [None]
